FAERS Safety Report 7376061-7 (Version None)
Quarter: 2011Q1

REPORT INFORMATION
  Report Type: 
  Country: None (occurrence: None)
  Receive Date: 20110325
  Receipt Date: 20110317
  Transmission Date: 20110831
  Serious: Yes (Death, Hospitalization)
  Sender: FDA-Public Use
  Company Number: JP-PFIZER INC-2011049483

PATIENT
  Age: 76 Year
  Sex: Female

DRUGS (2)
  1. INDOMETACIN [Concomitant]
  2. CELECOX [Suspect]
     Indication: RHEUMATOID ARTHRITIS
     Dosage: 200 MG, DAILY
     Route: 048
     Dates: start: 20080215, end: 20081021

REACTIONS (2)
  - CARDIAC ARREST [None]
  - DEATH [None]
